FAERS Safety Report 22838031 (Version 2)
Quarter: 2024Q2

REPORT INFORMATION
  Report Type: Spontaneous
  Country: US (occurrence: US)
  Receive Date: 20230818
  Receipt Date: 20240525
  Transmission Date: 20240716
  Serious: Yes (Hospitalization)
  Sender: FDA-Public Use
  Company Number: US-ABBVIE-5369248

PATIENT
  Age: 43 Year
  Sex: Female
  Weight: 54 kg

DRUGS (7)
  1. BOTOX [Suspect]
     Active Substance: ONABOTULINUMTOXINA
     Indication: Migraine
     Dosage: TIME INTERVAL: AS NECESSARY
     Route: 065
     Dates: start: 20201204, end: 20201204
  2. BOTOX [Suspect]
     Active Substance: ONABOTULINUMTOXINA
     Indication: Migraine
     Dosage: TIME INTERVAL: AS NECESSARY
     Route: 065
     Dates: start: 20230714, end: 20230714
  3. BOTOX [Suspect]
     Active Substance: ONABOTULINUMTOXINA
     Indication: Migraine
     Dosage: TIME INTERVAL: AS NECESSARY
     Route: 065
     Dates: start: 20230714, end: 20230714
  4. BOTOX [Suspect]
     Active Substance: ONABOTULINUMTOXINA
     Indication: Migraine
     Dosage: TIME INTERVAL: AS NECESSARY
     Route: 065
     Dates: start: 2022, end: 2022
  5. UBRELVY [Concomitant]
     Active Substance: UBROGEPANT
     Indication: Migraine
  6. BACLOFEN [Concomitant]
     Active Substance: BACLOFEN
     Indication: Neck pain
     Route: 048
  7. ACETAZOLAMIDE [Concomitant]
     Active Substance: ACETAZOLAMIDE
     Indication: Memory impairment
     Route: 048

REACTIONS (12)
  - Fatigue [Recovered/Resolved]
  - Dysphonia [Recovered/Resolved]
  - Muscular weakness [Recovered/Resolved]
  - Muscular weakness [Recovered/Resolved]
  - Chest discomfort [Recovering/Resolving]
  - Asthenia [Unknown]
  - Dysphonia [Recovered/Resolved]
  - Fatigue [Recovered/Resolved]
  - Tachycardia [Recovering/Resolving]
  - Headache [Unknown]
  - Feeding disorder [Recovered/Resolved]
  - Feeding disorder [Recovered/Resolved]

NARRATIVE: CASE EVENT DATE: 20230101
